FAERS Safety Report 8463361-2 (Version None)
Quarter: 2012Q2

REPORT INFORMATION
  Report Type: 
  Country: None (occurrence: None)
  Receive Date: 20120323
  Receipt Date: 20111125
  Transmission Date: 20120825
  Serious: Yes (Hospitalization)
  Sender: FDA-Public Use
  Company Number: 163-21880=11092740

PATIENT
  Age: 70 Year
  Sex: Female

DRUGS (3)
  1. REVLIMID [Suspect]
     Indication: MULTIPLE MYELOMA
     Dosage: 10 MG, DAILY FOR 14 DAYS, PO; 15 MG, DAILY FOR  14 DAYS, PO
     Route: 048
     Dates: start: 20100831
  2. REVLIMID [Suspect]
     Indication: MULTIPLE MYELOMA
     Dosage: 10 MG, DAILY FOR 14 DAYS, PO; 15 MG, DAILY FOR  14 DAYS, PO
     Route: 048
     Dates: start: 20111121
  3. REVLIMID [Suspect]

REACTIONS (1)
  - PNEUMONIA [None]
